FAERS Safety Report 5113930-2 (Version None)
Quarter: 2006Q3

REPORT INFORMATION
  Report Type: 
  Country: None (occurrence: None)
  Receive Date: 20060920
  Receipt Date: 20060901
  Transmission Date: 20061208
  Serious: Yes (Death, Life-Threatening, Hospitalization)
  Sender: FDA-Public Use
  Company Number: SG200607001741

PATIENT
  Age: 59 Year
  Sex: Male
  Weight: 65.9 kg

DRUGS (5)
  1. GEMCITABINE [Suspect]
     Indication: COLON CANCER
     Dosage: 800 MG
     Dates: start: 20060706
  2. CARBOPLATIN [Concomitant]
  3. DEXAMETHASONE TAB [Concomitant]
  4. CAELYX (DOXORUBICIN HYDROCHLORIDE) [Concomitant]
  5. KYTRIN (GRANISETRON) [Concomitant]

REACTIONS (2)
  - PNEUMONITIS [None]
  - WEIGHT DECREASED [None]
